FAERS Safety Report 23016023 (Version 1)
Quarter: 2023Q4

REPORT INFORMATION
  Report Type: Spontaneous
  Country: US (occurrence: None)
  Receive Date: 20231001
  Receipt Date: 20231001
  Transmission Date: 20240110
  Serious: Yes (Other)
  Sender: FDA-Public Use
  Company Number: None

PATIENT
  Age: 36 Year
  Sex: Female
  Weight: 72 kg

DRUGS (1)
  1. SUBLOCADE [Suspect]
     Active Substance: BUPRENORPHINE
     Indication: Drug dependence
     Dates: start: 20230901, end: 20231001

REACTIONS (7)
  - Axillary mass [None]
  - Lymphadenopathy [None]
  - Injection site reaction [None]
  - Skin discolouration [None]
  - Injection site erythema [None]
  - Pruritus [None]
  - Insomnia [None]

NARRATIVE: CASE EVENT DATE: 20231001
